FAERS Safety Report 6539852-8 (Version None)
Quarter: 2010Q1

REPORT INFORMATION
  Report Type: 
  Country: None (occurrence: None)
  Receive Date: 20100115
  Receipt Date: 20100104
  Transmission Date: 20100710
  Serious: Yes (Death, Hospitalization)
  Sender: FDA-Public Use
  Company Number: US-WATSON-2009-11301

PATIENT
  Sex: Female

DRUGS (3)
  1. ALBUTEROL SULFATE AND IPRATROPIUM BROMIDE [Suspect]
     Indication: DYSPNOEA
     Dosage: 1 AMP 6 X DAILY IN 20 MINUTE INCREMENTS
     Dates: start: 20090419, end: 20090514
  2. ALBUTEROL SULFATE AND IPRATROPIUM BROMIDE [Suspect]
     Dosage: 1 AMP 6 X DAILY IN 20 MINUTE INCREMENTS
     Dates: start: 20090317, end: 20090514
  3. ADVAIR [Suspect]
     Indication: CHRONIC OBSTRUCTIVE PULMONARY DISEASE
     Dosage: UNK
     Route: 065
     Dates: start: 20090301, end: 20090424

REACTIONS (8)
  - CARDIAC DISORDER [None]
  - CEREBROVASCULAR ACCIDENT [None]
  - CHEST PAIN [None]
  - CONDITION AGGRAVATED [None]
  - DRUG INTERACTION [None]
  - DYSPNOEA [None]
  - HEART RATE IRREGULAR [None]
  - MASS [None]
